FAERS Safety Report 4906431-5 (Version None)
Quarter: 2006Q1

REPORT INFORMATION
  Report Type: 
  Country: None (occurrence: None)
  Receive Date: 20060206
  Receipt Date: 20060119
  Transmission Date: 20060701
  Serious: Yes (Other)
  Sender: FDA-Public Use
  Company Number: 2005BL002401

PATIENT
  Age: 52 Year
  Sex: Male

DRUGS (2)
  1. RETISERT [Suspect]
     Indication: DIABETIC RETINAL OEDEMA
     Dosage: RIGHT EYE
     Dates: start: 20020117
  2. HUMULIN 70/30 [Concomitant]

REACTIONS (6)
  - BLINDNESS [None]
  - CORNEAL OEDEMA [None]
  - CORNEAL TRANSPLANT [None]
  - INTRAOCULAR PRESSURE INCREASED [None]
  - MACULAR SCAR [None]
  - POSTERIOR CAPSULE OPACIFICATION [None]
